FAERS Safety Report 21360001 (Version 1)
Quarter: 2022Q3

REPORT INFORMATION
  Report Type: Report from Study
  Country: TZ (occurrence: TZ)
  Receive Date: 20220921
  Receipt Date: 20220921
  Transmission Date: 20221027
  Serious: Yes (Death, Life-Threatening, Hospitalization, Other)
  Sender: FDA-Public Use
  Company Number: TZ-MYLANLABS-2021M1051021

PATIENT
  Age: 33 Year
  Sex: Male

DRUGS (14)
  1. DELAMANID [Suspect]
     Active Substance: DELAMANID
     Indication: Pulmonary tuberculosis
     Dosage: 100 MG, BID (MORNING AND EVENING)
     Route: 048
     Dates: start: 20210723, end: 20210730
  2. DELAMANID [Suspect]
     Active Substance: DELAMANID
     Dosage: UNK
     Route: 065
     Dates: start: 20210807
  3. MOXIFLOXACIN [Suspect]
     Active Substance: MOXIFLOXACIN
     Indication: Pulmonary tuberculosis
     Dosage: 400 MG, QD (MORNING)
     Route: 048
     Dates: start: 20210723, end: 20210730
  4. MOXIFLOXACIN [Suspect]
     Active Substance: MOXIFLOXACIN
     Dosage: UNK
     Route: 065
     Dates: start: 20210807
  5. SUTEZOLID [Suspect]
     Active Substance: SUTEZOLID
     Indication: Pulmonary tuberculosis
     Dosage: UNK, QD (MORNING)
     Route: 048
     Dates: start: 20210723, end: 20210730
  6. SUTEZOLID [Suspect]
     Active Substance: SUTEZOLID
     Dosage: UNK, QD (MORNING)
     Route: 048
     Dates: start: 20210723, end: 20210820
  7. SUTEZOLID [Suspect]
     Active Substance: SUTEZOLID
     Dosage: UNK
     Route: 065
     Dates: start: 20210807
  8. BEDAQUILINE [Suspect]
     Active Substance: BEDAQUILINE
     Indication: Pulmonary tuberculosis
     Dosage: 400 MG, QD (MORNING)
     Route: 048
     Dates: start: 20210723, end: 20210820
  9. BEDAQUILINE [Suspect]
     Active Substance: BEDAQUILINE
     Dosage: UNK
     Route: 065
     Dates: start: 20210807
  10. PREDNISOLONE [Concomitant]
     Active Substance: PREDNISOLONE
     Dosage: UNK
     Route: 065
     Dates: start: 20210730, end: 20210820
  11. RIFAMPIN [Concomitant]
     Active Substance: RIFAMPIN
     Indication: Pulmonary tuberculosis
     Dosage: UNK
     Route: 065
     Dates: start: 20210821
  12. ISONIAZID [Concomitant]
     Active Substance: ISONIAZID
     Indication: Pulmonary tuberculosis
     Dosage: UNK
     Route: 065
     Dates: start: 20210821
  13. PYRAZINAMIDE [Concomitant]
     Active Substance: PYRAZINAMIDE
     Indication: Pulmonary tuberculosis
     Dosage: UNK
     Route: 065
     Dates: start: 20210821
  14. ETHAMBUTOL [Concomitant]
     Active Substance: ETHAMBUTOL HYDROCHLORIDE
     Indication: Pulmonary tuberculosis
     Dosage: UNK
     Route: 065
     Dates: start: 20210821

REACTIONS (4)
  - COVID-19 [Fatal]
  - Respiratory failure [Fatal]
  - Pulmonary tuberculosis [Fatal]
  - Electrocardiogram QT prolonged [Unknown]

NARRATIVE: CASE EVENT DATE: 20210731
